FAERS Safety Report 20030985 (Version 1)
Quarter: 2021Q4

REPORT INFORMATION
  Report Type: Spontaneous
  Country: CA (occurrence: CA)
  Receive Date: 20211103
  Receipt Date: 20211103
  Transmission Date: 20220303
  Serious: Yes (Hospitalization)
  Sender: FDA-Public Use
  Company Number: CA-TEVA-2021-CA-1971364

PATIENT
  Age: 86 Year
  Sex: Male

DRUGS (2)
  1. CELECOXIB [Suspect]
     Active Substance: CELECOXIB
     Indication: Abdominal pain
     Route: 065
  2. NAPROXEN [Suspect]
     Active Substance: NAPROXEN
     Indication: Abdominal pain
     Route: 065

REACTIONS (3)
  - Gastrointestinal haemorrhage [Unknown]
  - Rectal haemorrhage [Unknown]
  - Therapy change [Unknown]
